FAERS Safety Report 25681069 (Version 2)
Quarter: 2025Q3

REPORT INFORMATION
  Report Type: Spontaneous
  Country: US (occurrence: US)
  Receive Date: 20250814
  Receipt Date: 20250825
  Transmission Date: 20251020
  Serious: Yes (Hospitalization)
  Sender: CATALYST PHARMA
  Company Number: US-CATALYST PHARMACEUTICALS-US-CATA-25-01139

PATIENT
  Age: 11 Year
  Sex: Male
  Weight: 41.5 kg

DRUGS (8)
  1. AGAMREE [Suspect]
     Active Substance: VAMOROLONE
     Indication: Duchenne muscular dystrophy
     Dosage: 5.4 ML DAILY
     Route: 048
     Dates: start: 20240717
  2. AGAMREE [Suspect]
     Active Substance: VAMOROLONE
     Dosage: 6 ML DAILY
     Route: 048
     Dates: start: 20250221
  3. CALCIUM\MAGNESIUM\ZINC [Concomitant]
     Active Substance: CALCIUM\MAGNESIUM\ZINC
     Indication: Hypovitaminosis
     Dosage: 334 MG -134 MG - 5 MG TWICE DAILY
     Route: 065
  4. VITAMIN D3 [Concomitant]
     Active Substance: CHOLECALCIFEROL
     Indication: Hypovitaminosis
     Dosage: 5000 IU/ 125 MCG EVERY TWO WEEKS
     Route: 065
  5. EQUAZEN PRO [Concomitant]
     Indication: Attention deficit hyperactivity disorder
     Dosage: 87-279-30 MG ONE CAPSULE DAILY
     Route: 065
  6. NYSTATIN [Concomitant]
     Active Substance: NYSTATIN
     Indication: Gastrointestinal fungal infection
     Dosage: 1 ML DAILY
     Route: 048
  7. PROBIOTICS NOS [Concomitant]
     Active Substance: PROBIOTICS NOS
     Indication: Gastrointestinal disorder prophylaxis
     Dosage: ONE PACKET DAILY
     Route: 065
  8. ZOLOFT [Concomitant]
     Active Substance: SERTRALINE HYDROCHLORIDE
     Indication: Affective disorder
     Dosage: 25 MG DAILY
     Route: 065

REACTIONS (5)
  - Duchenne muscular dystrophy [Not Recovered/Not Resolved]
  - Disease progression [Not Recovered/Not Resolved]
  - Urinary incontinence [Unknown]
  - Vomiting [Unknown]
  - Myalgia [Unknown]

NARRATIVE: CASE EVENT DATE: 20250801
